FAERS Safety Report 6932846-X (Version None)
Quarter: 2010Q3

REPORT INFORMATION
  Report Type: 
  Country: None (occurrence: None)
  Receive Date: 20100813
  Receipt Date: 20100421
  Transmission Date: 20110219
  Serious: No
  Sender: FDA-Public Use
  Company Number: 1000013313

PATIENT
  Age: 56 Year
  Sex: Female

DRUGS (8)
  1. SAVELLA [Suspect]
     Indication: FIBROMYALGIA
     Dosage: 1 IN 1 D, 50 MG (25 MG, 2 IN 1 D), ORAL
     Route: 048
     Dates: start: 20091001
  2. SAVELLA [Suspect]
     Indication: FIBROMYALGIA
     Dosage: 100 MG (50 MG, 2 IN 1 D), ORAL
     Route: 048
  3. TOFRANIL [Concomitant]
  4. CLONAZEPAM [Concomitant]
  5. TEMAZEPAM [Concomitant]
  6. HYDROCODONE [Concomitant]
  7. SOMA [Concomitant]
  8. SEROQUEL [Concomitant]

REACTIONS (1)
  - HOT FLUSH [None]
